FAERS Safety Report 8307624-X (Version None)
Quarter: 2012Q2

REPORT INFORMATION
  Report Type: 
  Country: None (occurrence: None)
  Receive Date: 20120424
  Receipt Date: 20120417
  Transmission Date: 20120825
  Serious: Yes (Other)
  Sender: FDA-Public Use
  Company Number: DE-PFIZER INC-2012094540

PATIENT
  Age: 40 Year
  Sex: Male

DRUGS (2)
  1. AMOXICILLIN [Suspect]
     Indication: PERIODONTITIS
     Dosage: 500 MG, 3X/DAY
     Route: 048
  2. METRONIDAZOLE [Suspect]
     Indication: PERIODONTITIS
     Dosage: 400 MG, 3X/DAY

REACTIONS (6)
  - MALAISE [None]
  - DECREASED APPETITE [None]
  - DIARRHOEA [None]
  - RESTLESSNESS [None]
  - INSOMNIA [None]
  - DEPRESSED MOOD [None]
